FAERS Safety Report 4947287-4 (Version None)
Quarter: 2006Q1

REPORT INFORMATION
  Report Type: 
  Country: None (occurrence: None)
  Receive Date: 20060317
  Receipt Date: 20060310
  Transmission Date: 20060701
  Serious: Yes (Hospitalization, Other)
  Sender: FDA-Public Use
  Company Number: US-BRISTOL-MYERS SQUIBB COMPANY-13311980

PATIENT
  Age: 50 Year
  Sex: Male

DRUGS (5)
  1. ERBITUX [Suspect]
     Indication: COLON CANCER METASTATIC
     Dosage: INIT JUNE 2005/CONTINUED 'TIL AUGUST 2005/RESTAR 07-MAR-2006 LOADING DOSE OF 400 MG/M2 (800 MG).
     Route: 042
     Dates: start: 20050801, end: 20050801
  2. IRINOTECAN HCL [Concomitant]
     Indication: COLON CANCER METASTATIC
     Dates: start: 20050801, end: 20050801
  3. BENADRYL [Concomitant]
     Indication: PREMEDICATION
     Route: 042
     Dates: start: 20050801, end: 20050801
  4. COUMADIN [Concomitant]
     Dosage: FOR OVER A YEAR.
  5. DURAGESIC-100 [Concomitant]
     Dates: start: 20050901

REACTIONS (10)
  - BLOOD PRESSURE INCREASED [None]
  - DELIRIUM [None]
  - FEELING ABNORMAL [None]
  - HEADACHE [None]
  - ILEUS [None]
  - NAUSEA [None]
  - PYREXIA [None]
  - SEPSIS [None]
  - SMALL INTESTINAL OBSTRUCTION [None]
  - VOMITING [None]
